FAERS Safety Report 11686758 (Version 1)
Quarter: 2015Q4

REPORT INFORMATION
  Report Type: Spontaneous
  Country: CN (occurrence: CN)
  Receive Date: 20151030
  Receipt Date: 20151030
  Transmission Date: 20160304
  Serious: Yes (Other)
  Sender: FDA-Public Use
  Company Number: CN-JNJFOC-20151017167

PATIENT
  Age: 6 Month
  Sex: Female
  Weight: 11 kg

DRUGS (4)
  1. ANTIVIRAL MEDICATION [Concomitant]
     Indication: BRONCHIOLITIS
     Route: 048
     Dates: start: 20150324, end: 20150327
  2. TYLENOL [Suspect]
     Active Substance: ACETAMINOPHEN
     Indication: PYREXIA
     Route: 048
     Dates: start: 20150326, end: 20150327
  3. AMOXICILLIN. [Suspect]
     Active Substance: AMOXICILLIN
     Indication: BRONCHIOLITIS
     Route: 048
     Dates: start: 20150324, end: 20150327
  4. TYLENOL [Suspect]
     Active Substance: ACETAMINOPHEN
     Route: 048

REACTIONS (3)
  - Respiratory rate increased [None]
  - Heart rate increased [None]
  - Granulocytopenia [Recovered/Resolved]

NARRATIVE: CASE EVENT DATE: 20150327
